FAERS Safety Report 18521325 (Version 3)
Quarter: 2020Q4

REPORT INFORMATION
  Report Type: Spontaneous
  Country: IT (occurrence: IT)
  Receive Date: 20201119
  Receipt Date: 20201203
  Transmission Date: 20210114
  Serious: Yes (Life-Threatening, Hospitalization, Other)
  Sender: FDA-Public Use
  Company Number: IT-SA-2020SA325699

PATIENT

DRUGS (15)
  1. CAPLACIZUMAB [Suspect]
     Active Substance: CAPLACIZUMAB
     Indication: IMMUNE THROMBOCYTOPENIA
     Dosage: 10 MG, QD (AFTER PEX WITH THE FIRST DOSE ADMINISTERED BEFORE THE FIRST PEX.)
     Dates: start: 2020, end: 2020
  2. ENOXAPARIN SODIUM. [Suspect]
     Active Substance: ENOXAPARIN SODIUM
     Indication: THROMBOSIS PROPHYLAXIS
     Dosage: 4000 IU, QD
     Dates: start: 2020, end: 2020
  3. FRESH FROZEN PLASMA [Concomitant]
     Active Substance: HUMAN PLASMA
     Indication: IMMUNE THROMBOCYTOPENIA
     Dosage: UNK
     Route: 041
     Dates: start: 2020
  4. OXYGEN. [Concomitant]
     Active Substance: OXYGEN
     Indication: OXYGEN THERAPY
     Dosage: 15 L, QMN (HIGH FLOW OXYGEN WITH MASK AND RESERVOIR BAG)
     Route: 045
  5. METHYLPREDNISOLONE. [Concomitant]
     Active Substance: METHYLPREDNISOLONE
     Indication: IMMUNE THROMBOCYTOPENIA
     Dosage: 1 MG/KG, QD (HIGH DOSE)
     Dates: start: 2020, end: 2020
  6. HYDROXYCHLOROQUINE [Concomitant]
     Active Substance: HYDROXYCHLOROQUINE
     Indication: EVIDENCE BASED TREATMENT
     Dosage: UNK
     Dates: start: 2020
  7. OXYGEN. [Concomitant]
     Active Substance: OXYGEN
     Indication: OXYGEN THERAPY
     Dosage: 2 L, QMN (LOW FLOW BY NASAL CANNULA)
     Route: 045
  8. AZITHROMYCIN ANHYDROUS. [Concomitant]
     Active Substance: AZITHROMYCIN ANHYDROUS
     Indication: EVIDENCE BASED TREATMENT
     Dosage: UNK
     Dates: start: 2020
  9. OXYGEN. [Concomitant]
     Active Substance: OXYGEN
     Dosage: BY NASAL CANNULA
     Route: 045
     Dates: start: 2020
  10. OXYGEN. [Concomitant]
     Active Substance: OXYGEN
     Dosage: HIGH-FLOW OXYGEN SUPPLEMENTATION (WITH MASK AND RESERVOIR BAG)
     Route: 045
     Dates: start: 2020
  11. METHYLPREDNISOLONE. [Concomitant]
     Active Substance: METHYLPREDNISOLONE
     Indication: THROMBOTIC THROMBOCYTOPENIC PURPURA
  12. ACETYLSALICYLIC ACID [Suspect]
     Active Substance: ASPIRIN
     Indication: ANTIPLATELET THERAPY
     Dosage: 100 MG, QD
     Route: 048
     Dates: start: 2020, end: 2020
  13. ENOXAPARIN SODIUM. [Suspect]
     Active Substance: ENOXAPARIN SODIUM
     Indication: EVIDENCE BASED TREATMENT
  14. CEFTRIAXONE. [Concomitant]
     Active Substance: CEFTRIAXONE
     Indication: EVIDENCE BASED TREATMENT
     Dosage: UNK
     Dates: start: 2020
  15. CORTICOSTEROID NOS [Concomitant]
     Active Substance: CORTICOSTEROID NOS
     Indication: EVIDENCE BASED TREATMENT
     Dosage: UNK (LOW DOSE)
     Dates: start: 2020

REACTIONS (6)
  - Bronchial haemorrhage [Recovered/Resolved]
  - Bleeding time prolonged [Recovered/Resolved]
  - Haemorrhage [Recovered/Resolved]
  - Haemoptysis [Recovered/Resolved]
  - Anaemia [Recovered/Resolved]
  - Arterial haemorrhage [Recovered/Resolved]

NARRATIVE: CASE EVENT DATE: 2020
